FAERS Safety Report 6273201-8 (Version None)
Quarter: 2009Q3

REPORT INFORMATION
  Report Type: 
  Country: None (occurrence: None)
  Receive Date: 20090715
  Receipt Date: 20090707
  Transmission Date: 20100115
  Serious: Yes (Life-Threatening)
  Sender: FDA-Public Use
  Company Number: PH-JNJFOC-20090609673

PATIENT
  Age: 60 Year
  Sex: Female

DRUGS (1)
  1. DACOGEN [Suspect]
     Indication: ACUTE MYELOID LEUKAEMIA RECURRENT
     Dosage: INTRAVENOUS
     Route: 042

REACTIONS (5)
  - CARDIAC ARREST [None]
  - COMA [None]
  - DIABETES INSIPIDUS [None]
  - DIABETES MELLITUS [None]
  - WHITE BLOOD CELL COUNT DECREASED [None]
